FAERS Safety Report 8611368 (Version 10)
Quarter: 2014Q1

REPORT INFORMATION
  Report Type: Spontaneous
  Country: AU (occurrence: AU)
  Receive Date: 20120613
  Receipt Date: 20140130
  Transmission Date: 20141002
  Serious: Yes (Hospitalization, Other)
  Sender: FDA-Public Use
  Company Number: AU-BIOGENIDEC-2012BI018844

PATIENT
  Age: 50 Year
  Sex: Female

DRUGS (2)
  1. TYSABRI [Suspect]
     Indication: MULTIPLE SCLEROSIS
     Route: 042
     Dates: start: 20090406, end: 20120220
  2. PREDNISONE [Concomitant]
     Indication: ASTHMA

REACTIONS (8)
  - Progressive multifocal leukoencephalopathy [Recovered/Resolved]
  - Convulsion [Unknown]
  - Immune reconstitution inflammatory syndrome [Recovered/Resolved]
  - Multiple sclerosis relapse [Not Recovered/Not Resolved]
  - Knee operation [Unknown]
  - Cushingoid [Unknown]
  - Somnolence [Unknown]
  - Weight decreased [Unknown]
